FAERS Safety Report 5759810-0 (Version None)
Quarter: 2008Q2

REPORT INFORMATION
  Report Type: 
  Country: None (occurrence: None)
  Receive Date: 20080605
  Receipt Date: 20080527
  Transmission Date: 20081010
  Serious: Yes (Congenital Anomaly)
  Sender: FDA-Public Use
  Company Number: FR-ASTRAZENECA-2008CG00801

PATIENT
  Sex: Male
  Weight: 1.7 kg

DRUGS (1)
  1. MOPRAL [Suspect]
     Indication: ABDOMINAL PAIN UPPER
     Route: 064
     Dates: start: 20070101, end: 20070601

REACTIONS (3)
  - FOETAL GROWTH RETARDATION [None]
  - INGUINAL HERNIA [None]
  - PREMATURE BABY [None]
